FAERS Safety Report 21218560 (Version 5)
Quarter: 2022Q4

REPORT INFORMATION
  Report Type: Report from Study
  Country: US (occurrence: US)
  Receive Date: 20220816
  Receipt Date: 20221122
  Transmission Date: 20230113
  Serious: Yes (Hospitalization, Other)
  Sender: FDA-Public Use
  Company Number: US-PFIZER INC-202200772864

PATIENT
  Age: 72 Year
  Sex: Female

DRUGS (5)
  1. IBRANCE [Suspect]
     Active Substance: PALBOCICLIB
     Indication: Breast cancer female
     Dosage: 125 MG, CYCLIC (DAILY, 21 DAYS ON/7 DAYS OFF)
     Dates: start: 201910
  2. IBRANCE [Suspect]
     Active Substance: PALBOCICLIB
     Dosage: 100 MG, CYCLIC (DAILY, 21 DAYS ON/7 DAYS OFF)
     Route: 048
     Dates: start: 20220516
  3. IBRANCE [Suspect]
     Active Substance: PALBOCICLIB
     Dosage: 100 MG, CYCLIC (DAILY, 21 DAYS ON/7 DAYS OFF)
     Route: 048
     Dates: start: 20220804
  4. ANASTROZOLE [Concomitant]
     Active Substance: ANASTROZOLE
     Dosage: UNK
  5. METOPROLOL [Concomitant]
     Active Substance: METOPROLOL
     Dosage: UNK

REACTIONS (24)
  - Ascites [Unknown]
  - Sepsis [Recovered/Resolved]
  - Neoplasm progression [Unknown]
  - Off label use [Unknown]
  - White blood cell count decreased [Unknown]
  - Dry skin [Unknown]
  - Fatigue [Unknown]
  - Nausea [Recovering/Resolving]
  - Dry mouth [Unknown]
  - Decreased appetite [Unknown]
  - Urinary tract infection [Unknown]
  - Vomiting [Recovered/Resolved]
  - Rhinorrhoea [Unknown]
  - Feeling cold [Unknown]
  - Appetite disorder [Recovering/Resolving]
  - Dizziness [Not Recovered/Not Resolved]
  - Gait disturbance [Unknown]
  - Malaise [Unknown]
  - Eructation [Unknown]
  - Abdominal discomfort [Unknown]
  - Pain [Unknown]
  - Muscle spasms [Unknown]
  - Gait disturbance [Unknown]
  - Balance disorder [Unknown]

NARRATIVE: CASE EVENT DATE: 20191001
